FAERS Safety Report 11842472 (Version 1)
Quarter: 2015Q4

REPORT INFORMATION
  Report Type: Spontaneous
  Country: US (occurrence: US)
  Receive Date: 20151216
  Receipt Date: 20151216
  Transmission Date: 20160305
  Serious: No
  Sender: FDA-Public Use
  Company Number: US-RB-078696-15

PATIENT
  Age: 95 Year
  Sex: Female

DRUGS (4)
  1. DELSYM [Suspect]
     Active Substance: DEXTROMETHORPHAN
     Indication: NASOPHARYNGITIS
     Dosage: 1DF. PRODUCT LAST USED ON 17/JUN/2015 AT 02:00 PM.,FREQUENCY UNK
     Route: 065
     Dates: start: 20150615
  2. CEFDINIR. [Concomitant]
     Active Substance: CEFDINIR
     Indication: PRODUCT USED FOR UNKNOWN INDICATION
     Dosage: DOSE UNK, UNITS UNK, FREQUENCY UNK
     Route: 065
  3. DELSYM [Suspect]
     Active Substance: DEXTROMETHORPHAN
     Dosage: 1DF. ,FREQUENCY UNK
     Route: 065
     Dates: start: 20150617
  4. DELSYM [Suspect]
     Active Substance: DEXTROMETHORPHAN
     Dosage: 0.50DF. PRODUCT LAST USED ON 17/JUN/2015 AT 02:00 PM.,FREQUENCY UNK
     Route: 065

REACTIONS (2)
  - Cough [Recovered/Resolved]
  - Somnolence [Recovered/Resolved]

NARRATIVE: CASE EVENT DATE: 20150615
